FAERS Safety Report 6984040-4 (Version None)
Quarter: 2010Q3

REPORT INFORMATION
  Report Type: 
  Country: None (occurrence: None)
  Receive Date: 20100915
  Receipt Date: 20090526
  Transmission Date: 20110219
  Serious: No
  Sender: FDA-Public Use
  Company Number: US-WYE-H09381609

PATIENT
  Sex: Female

DRUGS (2)
  1. PRISTIQ [Suspect]
     Indication: MIGRAINE
     Route: 048
     Dates: start: 20090401, end: 20090511
  2. PRISTIQ [Suspect]
     Indication: DEPRESSION

REACTIONS (3)
  - DIZZINESS [None]
  - DRUG WITHDRAWAL SYNDROME [None]
  - THERAPEUTIC RESPONSE UNEXPECTED [None]
